FAERS Safety Report 4677937-1 (Version None)
Quarter: 2005Q2

REPORT INFORMATION
  Report Type: 
  Country: None (occurrence: None)
  Receive Date: 20050531
  Receipt Date: 20050426
  Transmission Date: 20051028
  Serious: Yes (Hospitalization)
  Sender: FDA-Public Use
  Company Number: PHRM2005FR01427

PATIENT
  Age: 67 Year
  Sex: Female
  Weight: 52 kg

DRUGS (4)
  1. MIFLONIL [Suspect]
     Indication: BRONCHITIS
     Dates: start: 20050222, end: 20050307
  2. MIFLONIL [Suspect]
     Dates: start: 20050322, end: 20050407
  3. FORADIL [Suspect]
     Indication: BRONCHITIS
     Dosage: 12 UG, BID
     Dates: start: 20050222, end: 20050307
  4. FORADIL [Suspect]
     Dosage: 12 UG, BID
     Dates: start: 20050322, end: 20050407

REACTIONS (6)
  - FALL [None]
  - FOOT FRACTURE [None]
  - JOINT DISLOCATION [None]
  - JOINT DISLOCATION REDUCTION [None]
  - MUSCLE SPASMS [None]
  - PAIN [None]
